FAERS Safety Report 5618953-2 (Version None)
Quarter: 2008Q1

REPORT INFORMATION
  Report Type: 
  Country: None (occurrence: None)
  Receive Date: 20080204
  Receipt Date: 20080124
  Transmission Date: 20080703
  Serious: Yes (Hospitalization, Other)
  Sender: FDA-Public Use
  Company Number: CHNY2008JP00682

PATIENT
  Age: 63 Year
  Sex: Male

DRUGS (1)
  1. ACETYLSALICYLIC ACID SRT [Suspect]
     Indication: VERTEBROBASILAR INSUFFICIENCY
     Dosage: 81 MG, QD,

REACTIONS (3)
  - ANAPHYLACTIC SHOCK [None]
  - FOOD ALLERGY [None]
  - SUBDURAL HAEMORRHAGE [None]
